FAERS Safety Report 19506715 (Version 31)
Quarter: 2025Q3

REPORT INFORMATION
  Report Type: Report from Study
  Country: US (occurrence: US)
  Receive Date: 20210708
  Receipt Date: 20250721
  Transmission Date: 20251021
  Serious: Yes (Hospitalization, Other)
  Sender: TAKEDA
  Company Number: US-TAKEDA-US202023251

PATIENT
  Age: 60 Year
  Sex: Female
  Weight: 128 kg

DRUGS (34)
  1. HUMAN IMMUNOGLOBULIN G [Suspect]
     Active Substance: HUMAN IMMUNOGLOBULIN G
     Indication: Primary immunodeficiency syndrome
     Dosage: 40 GRAM, Q2WEEKS
  2. HUMAN IMMUNOGLOBULIN G [Suspect]
     Active Substance: HUMAN IMMUNOGLOBULIN G
     Indication: Immunodeficiency common variable
  3. HUMAN IMMUNOGLOBULIN G [Suspect]
     Active Substance: HUMAN IMMUNOGLOBULIN G
     Dosage: 30 GRAM, Q2WEEKS
  4. HUMAN IMMUNOGLOBULIN G [Suspect]
     Active Substance: HUMAN IMMUNOGLOBULIN G
  5. PFIZER-BIONTECH COVID-19 VACCINE [Suspect]
     Active Substance: TOZINAMERAN
     Indication: COVID-19 immunisation
  6. HUMIRA [Concomitant]
     Active Substance: ADALIMUMAB
  7. VITAMIN D [Concomitant]
     Active Substance: VITAMIN D NOS
  8. ACETAMINOPHEN [Concomitant]
     Active Substance: ACETAMINOPHEN
  9. EPINEPHRINE [Concomitant]
     Active Substance: EPINEPHRINE
  10. HUMALOG [Concomitant]
     Active Substance: INSULIN LISPRO
  11. PREDNISONE [Concomitant]
     Active Substance: PREDNISONE
  12. LAMICTAL [Concomitant]
     Active Substance: LAMOTRIGINE
  13. ZOLOFT [Concomitant]
     Active Substance: SERTRALINE HYDROCHLORIDE
  14. LIPITOR [Concomitant]
     Active Substance: ATORVASTATIN CALCIUM
  15. LYRICA [Concomitant]
     Active Substance: PREGABALIN
  16. AZELASTINE HYDROCHLORIDE [Concomitant]
     Active Substance: AZELASTINE HYDROCHLORIDE
  17. PHENERGAN [Concomitant]
     Active Substance: PROMETHAZINE HYDROCHLORIDE
  18. HYDROXYCHLOROQUINE SULFATE [Concomitant]
     Active Substance: HYDROXYCHLOROQUINE SULFATE
  19. LOSARTAN POTASSIUM [Concomitant]
     Active Substance: LOSARTAN POTASSIUM
  20. VITAMIN D3 [Concomitant]
     Active Substance: CHOLECALCIFEROL
  21. LIDOCAINE [Concomitant]
     Active Substance: LIDOCAINE
  22. SEROQUEL [Concomitant]
     Active Substance: QUETIAPINE FUMARATE
  23. MAGNESIUM [Concomitant]
     Active Substance: MAGNESIUM
  24. CLONAZEPAM [Concomitant]
     Active Substance: CLONAZEPAM
  25. SPIRONOLACTONE [Concomitant]
     Active Substance: SPIRONOLACTONE
  26. SYNTHROID [Concomitant]
     Active Substance: LEVOTHYROXINE SODIUM
  27. DIPHENHYDRAMINE HYDROCHLORIDE [Concomitant]
     Active Substance: DIPHENHYDRAMINE HYDROCHLORIDE
  28. OXAPROZIN [Concomitant]
     Active Substance: OXAPROZIN
  29. BUDESONIDE [Concomitant]
     Active Substance: BUDESONIDE
  30. OMEPRAZOLE [Concomitant]
     Active Substance: OMEPRAZOLE
  31. TEA [Concomitant]
     Active Substance: TEA LEAF
  32. ONDANSETRON HYDROCHLORIDE [Concomitant]
     Active Substance: ONDANSETRON HYDROCHLORIDE
  33. METFORMIN [Concomitant]
     Active Substance: METFORMIN HYDROCHLORIDE
  34. ASPIRIN [Concomitant]
     Active Substance: ASPIRIN

REACTIONS (48)
  - Illness [Recovering/Resolving]
  - Rheumatoid arthritis [Recovering/Resolving]
  - Nephrolithiasis [Unknown]
  - Impaired gastric emptying [Unknown]
  - Diabetes mellitus [Unknown]
  - Retching [Unknown]
  - Nervousness [Unknown]
  - Migraine [Unknown]
  - Nausea [Unknown]
  - Headache [Unknown]
  - Fall [Unknown]
  - Giant cell arteritis [Recovered/Resolved]
  - Weight increased [Unknown]
  - Nasopharyngitis [Unknown]
  - Obstruction [Unknown]
  - Metapneumovirus infection [Unknown]
  - Insurance issue [Unknown]
  - Haemoglobin decreased [Unknown]
  - Hypersomnia [Unknown]
  - Thyroid disorder [Unknown]
  - Macrocytosis [Unknown]
  - Sleep disorder [Recovered/Resolved]
  - Biopsy bone marrow abnormal [Unknown]
  - Antinuclear antibody increased [Unknown]
  - Red blood cell sedimentation rate increased [Unknown]
  - Product dose omission issue [Unknown]
  - Sinusitis [Unknown]
  - Upper respiratory tract infection [Unknown]
  - Visual impairment [Unknown]
  - Influenza [Unknown]
  - Epistaxis [Unknown]
  - Feeling abnormal [Unknown]
  - Contusion [Unknown]
  - Oropharyngeal pain [Unknown]
  - Red blood cell count decreased [Not Recovered/Not Resolved]
  - Asthenia [Recovering/Resolving]
  - Anaemia [Unknown]
  - Anxiety [Unknown]
  - Cough [Not Recovered/Not Resolved]
  - Malaise [Unknown]
  - Pain [Unknown]
  - Dyspnoea [Unknown]
  - Arthralgia [Unknown]
  - Vomiting [Unknown]
  - Diarrhoea [Unknown]
  - Fatigue [Not Recovered/Not Resolved]
  - COVID-19 [Recovering/Resolving]
  - Fear [Unknown]

NARRATIVE: CASE EVENT DATE: 20240318
